FAERS Safety Report 20835786 (Version 1)
Quarter: 2022Q2

REPORT INFORMATION
  Report Type: Spontaneous
  Country: US (occurrence: US)
  Receive Date: 20220516
  Receipt Date: 20220516
  Transmission Date: 20220721
  Serious: No
  Sender: FDA-Public Use
  Company Number: US-BEH-2022145469

PATIENT
  Sex: Female

DRUGS (1)
  1. HIZENTRA [Suspect]
     Active Substance: HUMAN IMMUNOGLOBULIN G
     Indication: Selective IgA immunodeficiency
     Dosage: 10 GRAM, QOW
     Route: 058
     Dates: start: 20211004

REACTIONS (3)
  - Increased appetite [Unknown]
  - Decreased activity [Unknown]
  - Weight increased [Unknown]
